FAERS Safety Report 10044521 (Version 1)
Quarter: 2014Q1

REPORT INFORMATION
  Report Type: Spontaneous
  Country: FR (occurrence: FR)
  Receive Date: 20140328
  Receipt Date: 20140328
  Transmission Date: 20141002
  Serious: Yes (Hospitalization)
  Sender: FDA-Public Use
  Company Number: FR-B.I. PHARMACEUTICALS,INC./RIDGEFIELD-2014-BI-12610FF

PATIENT
  Age: 78 Year
  Sex: Male

DRUGS (3)
  1. PRADAXA [Suspect]
     Indication: ARRHYTHMIA PROPHYLAXIS
     Dosage: 300 MG
     Route: 048
     Dates: start: 201310, end: 20140222
  2. PRADAXA [Suspect]
     Dosage: 150 MG
     Route: 048
     Dates: start: 20140222, end: 20140225
  3. PRADAXA [Suspect]
     Dosage: 220 MG
     Route: 048
     Dates: start: 20140225, end: 20140227

REACTIONS (2)
  - Malaise [Not Recovered/Not Resolved]
  - Splenic haematoma [Not Recovered/Not Resolved]
